FAERS Safety Report 5790313-3 (Version None)
Quarter: 2008Q2

REPORT INFORMATION
  Report Type: 
  Country: None (occurrence: None)
  Receive Date: 20080626
  Receipt Date: 20080513
  Transmission Date: 20081010
  Serious: No
  Sender: FDA-Public Use
  Company Number: A0708287A

PATIENT
  Sex: Female

DRUGS (1)
  1. ALLI [Suspect]

REACTIONS (13)
  - ABDOMINAL DISTENSION [None]
  - BREAST DISCOMFORT [None]
  - CHANGE OF BOWEL HABIT [None]
  - CONSTIPATION [None]
  - CRYING [None]
  - FLATULENCE [None]
  - GASTROINTESTINAL DISORDER [None]
  - HUNGER [None]
  - MYALGIA [None]
  - NERVOUSNESS [None]
  - PAIN [None]
  - WEIGHT FLUCTUATION [None]
  - WEIGHT INCREASED [None]
